FAERS Safety Report 5477644-1 (Version None)
Quarter: 2007Q4

REPORT INFORMATION
  Report Type: 
  Country: None (occurrence: None)
  Receive Date: 20071002
  Receipt Date: 20070925
  Transmission Date: 20080405
  Serious: Yes (Other)
  Sender: FDA-Public Use
  Company Number: 2007331688

PATIENT
  Sex: Female

DRUGS (1)
  1. BENADRYL DRY FORTE (DEXTROMETHORPHAN) [Suspect]
     Dosage: 1/2 100 ML BOTTLE DURING THE NIGHT, ORAL
     Route: 048
     Dates: start: 20070924

REACTIONS (2)
  - INCORRECT DOSE ADMINISTERED [None]
  - SOMNOLENCE [None]
